FAERS Safety Report 8252851-3 (Version None)
Quarter: 2012Q2

REPORT INFORMATION
  Report Type: 
  Country: None (occurrence: None)
  Receive Date: 20120402
  Receipt Date: 20120112
  Transmission Date: 20120825
  Serious: No
  Sender: FDA-Public Use
  Company Number: US-ABBOTT-12P-163-0893233-00

PATIENT
  Sex: Male
  Weight: 95.34 kg

DRUGS (2)
  1. ANDROGEL [Suspect]
     Indication: BLOOD TESTOSTERONE DECREASED
  2. GLIPIZIDE [Concomitant]
     Indication: TYPE 2 DIABETES MELLITUS

REACTIONS (2)
  - BLOOD TESTOSTERONE FREE INCREASED [None]
  - WRONG TECHNIQUE IN DRUG USAGE PROCESS [None]
